FAERS Safety Report 10066955 (Version 1)
Quarter: 2014Q2

REPORT INFORMATION
  Report Type: Spontaneous
  Country: CH (occurrence: CH)
  Receive Date: 20140409
  Receipt Date: 20140409
  Transmission Date: 20141212
  Serious: Yes (Hospitalization)
  Sender: FDA-Public Use
  Company Number: CH-PFIZER INC-2014098296

PATIENT
  Age: 83 Year
  Sex: Male

DRUGS (17)
  1. PANTOPRAZOLE [Suspect]
     Dosage: 40 MG, 1X/DAY
     Route: 048
  2. ATORVASTATIN CALCIUM [Interacting]
     Dosage: 20 MG, 1X/DAY
     Route: 048
  3. ALLOPUR [Interacting]
     Dosage: 1 DF, 1X/DAY
     Route: 048
  4. MARCOUMAR [Interacting]
     Indication: ATRIAL FLUTTER
     Dosage: UNK, AS NEEDED
     Route: 048
     Dates: end: 201403
  5. EUTHYROX [Interacting]
     Dosage: 75 UG, 1X/DAY
     Route: 048
  6. BUDENOFALK [Concomitant]
     Dosage: UNK
     Dates: end: 20140224
  7. ALDACTONE [Concomitant]
     Dosage: UNK
  8. CELLCEPT [Concomitant]
     Dosage: UNK
  9. RAPAMUNE [Concomitant]
     Dosage: UNK
  10. FOSAMAX [Concomitant]
     Dosage: UNK
  11. TORASEMIDE [Concomitant]
     Dosage: UNK
  12. METOLAZONE [Concomitant]
     Dosage: UNK
  13. SYMBICORT [Concomitant]
     Dosage: UNK
  14. NOVALGIN [Concomitant]
     Dosage: UNK
  15. KALIUM [Concomitant]
     Dosage: UNK
  16. ZOLDORM [Concomitant]
     Dosage: UNK
  17. SIFROL [Concomitant]
     Dosage: UNK

REACTIONS (5)
  - Drug interaction [Recovering/Resolving]
  - International normalised ratio increased [Recovered/Resolved]
  - Diverticulitis intestinal haemorrhagic [Recovered/Resolved]
  - Anaemia [Recovering/Resolving]
  - Melaena [Recovered/Resolved]
